FAERS Safety Report 6310735-1 (Version None)
Quarter: 2009Q3

REPORT INFORMATION
  Report Type: 
  Country: None (occurrence: None)
  Receive Date: 20090811
  Receipt Date: 20090616
  Transmission Date: 20100115
  Serious: No
  Sender: FDA-Public Use
  Company Number: 1000006869

PATIENT
  Age: 37 Year
  Sex: Female

DRUGS (8)
  1. SAVELLA [Suspect]
     Indication: FIBROMYALGIA
     Dosage: SEE IMAGE
     Route: 048
     Dates: start: 20090514, end: 20090514
  2. SAVELLA [Suspect]
     Indication: FIBROMYALGIA
     Dosage: SEE IMAGE
     Route: 048
     Dates: start: 20090515, end: 20090516
  3. SAVELLA [Suspect]
     Indication: FIBROMYALGIA
     Dosage: SEE IMAGE
     Route: 048
     Dates: start: 20090517, end: 20090520
  4. SAVELLA [Suspect]
     Indication: FIBROMYALGIA
     Dosage: SEE IMAGE
     Route: 048
     Dates: start: 20090521
  5. VICODIN [Concomitant]
  6. SOMA [Concomitant]
  7. FISH OIL [Concomitant]
  8. VITAMINS [Concomitant]

REACTIONS (11)
  - AGGRESSION [None]
  - ANXIETY [None]
  - CHILLS [None]
  - DIZZINESS [None]
  - DRY MOUTH [None]
  - HEART RATE INCREASED [None]
  - HOT FLUSH [None]
  - HYPERHIDROSIS [None]
  - IRRITABILITY [None]
  - RECTAL HAEMORRHAGE [None]
  - VOMITING [None]
